FAERS Safety Report 4871811-3 (Version None)
Quarter: 2006Q1

REPORT INFORMATION
  Report Type: 
  Country: None (occurrence: None)
  Receive Date: 20060104
  Receipt Date: 20051223
  Transmission Date: 20060701
  Serious: Yes (Other)
  Sender: FDA-Public Use
  Company Number: GB-GLAXOSMITHKLINE-B0405204A

PATIENT
  Age: 75 Year
  Sex: Female

DRUGS (9)
  1. AVANDAMET [Suspect]
     Indication: DIABETES MELLITUS
     Route: 048
     Dates: start: 20051007, end: 20051202
  2. ATENOLOL [Concomitant]
     Indication: HYPERTENSION
     Dosage: 100MG PER DAY
     Route: 048
     Dates: start: 19970108
  3. WARFARIN [Concomitant]
     Indication: ATRIAL FIBRILLATION
     Dosage: 2.5MG PER DAY
     Route: 048
     Dates: start: 20050425
  4. PREDNISOLONE [Concomitant]
     Indication: POLYMYALGIA RHEUMATICA
     Dosage: 9MG PER DAY
     Route: 048
     Dates: start: 20050322
  5. FOSAMAX [Concomitant]
     Indication: OSTEOPOROSIS
     Dosage: 70MG PER DAY
     Route: 048
     Dates: start: 20051115
  6. AMLODIPINE [Concomitant]
     Dosage: 5MG PER DAY
     Route: 048
     Dates: start: 20040712
  7. ENALAPRIL [Concomitant]
     Dosage: 40MG PER DAY
     Route: 048
     Dates: start: 20030220
  8. BENDROFLUAZIDE [Concomitant]
     Dosage: 2.5MG PER DAY
     Route: 048
     Dates: start: 20020116
  9. SIMVASTATIN [Concomitant]
     Dosage: 10MG PER DAY
     Route: 048
     Dates: start: 19970108

REACTIONS (3)
  - DYSPNOEA [None]
  - FACE OEDEMA [None]
  - FATIGUE [None]
